FAERS Safety Report 18121735 (Version 3)
Quarter: 2020Q3

REPORT INFORMATION
  Report Type: Not Available
  Country: US (occurrence: US)
  Receive Date: 20200806
  Receipt Date: 20200827
  Transmission Date: 20201103
  Serious: Yes (Death)
  Sender: FDA-Public Use
  Company Number: US-NEUROCRINE BIOSCIENCES INC.-2020NBI02751

PATIENT
  Age: 73 Year
  Sex: Female

DRUGS (3)
  1. LITHIUM. [Concomitant]
     Active Substance: LITHIUM
  2. INGREZZA [Suspect]
     Active Substance: VALBENAZINE
     Indication: TARDIVE DYSKINESIA
     Route: 048
     Dates: start: 20200402, end: 20200503
  3. INVEGA [Concomitant]
     Active Substance: PALIPERIDONE
     Dosage: MONTHLY SHOTS

REACTIONS (4)
  - Cardio-respiratory arrest [Fatal]
  - Pain in extremity [Unknown]
  - Chronic respiratory disease [Fatal]
  - Thrombosis [Unknown]

NARRATIVE: CASE EVENT DATE: 20200503
